FAERS Safety Report 5562888-0 (Version None)
Quarter: 2007Q4

REPORT INFORMATION
  Report Type: 
  Country: None (occurrence: None)
  Receive Date: 20071217
  Receipt Date: 20071203
  Transmission Date: 20080405
  Serious: Yes (Hospitalization)
  Sender: FDA-Public Use
  Company Number: FR-AMGEN-US220493

PATIENT
  Sex: Female
  Weight: 48 kg

DRUGS (8)
  1. ENBREL [Suspect]
     Indication: ANKYLOSING SPONDYLITIS
     Route: 058
     Dates: start: 20061229, end: 20070901
  2. METHOTREXATE [Suspect]
     Indication: ANKYLOSING SPONDYLITIS
     Dosage: 10 MG TOTAL WEEKLY
     Route: 048
     Dates: start: 20060801, end: 20070301
  3. CORTANCYL [Concomitant]
     Route: 048
     Dates: start: 20060801, end: 20070101
  4. CORTANCYL [Concomitant]
     Route: 048
     Dates: start: 20070101
  5. SPECIAFOLDINE [Concomitant]
     Dosage: 2 DOSES TOTAL WEEKLY
     Route: 048
     Dates: start: 20060801, end: 20070301
  6. ACETAMINOPHEN [Concomitant]
     Dosage: 4 G TOTAL DAILY
     Route: 048
     Dates: start: 20060801
  7. MONOCRIXO LP [Concomitant]
     Dosage: 400 MG TOTAL DAILY
     Route: 048
     Dates: start: 20060801
  8. EUPANTOL [Concomitant]
     Route: 048
     Dates: start: 20060801

REACTIONS (2)
  - INTERSTITIAL LUNG DISEASE [None]
  - PNEUMOCYSTIS JIROVECI PNEUMONIA [None]
